FAERS Safety Report 13490024 (Version 1)
Quarter: 2017Q2

REPORT INFORMATION
  Report Type: Spontaneous
  Country: US (occurrence: US)
  Receive Date: 20170426
  Receipt Date: 20170426
  Transmission Date: 20170830
  Serious: No
  Sender: FDA-Public Use
  Company Number: US-ASTRAZENECA-2017SE41621

PATIENT
  Sex: Female
  Weight: 97.1 kg

DRUGS (3)
  1. ADVAIR HFA [Concomitant]
     Active Substance: FLUTICASONE PROPIONATE\SALMETEROL XINAFOATE
     Indication: CHRONIC OBSTRUCTIVE PULMONARY DISEASE
     Dosage: 250/50 INHALER, 1 PUFF, TWO TIMES A DAY
     Route: 055
     Dates: start: 2006
  2. PREDNISONE. [Concomitant]
     Active Substance: PREDNISONE
     Indication: DYSPNOEA
     Route: 048
  3. TUDORZA PRESSAIR [Suspect]
     Active Substance: ACLIDINIUM BROMIDE
     Indication: CHRONIC OBSTRUCTIVE PULMONARY DISEASE
     Route: 055

REACTIONS (9)
  - Device issue [Unknown]
  - Lacrimation increased [Unknown]
  - Visual impairment [Unknown]
  - Weight decreased [Unknown]
  - Weight increased [Unknown]
  - Asthma [Unknown]
  - Dry eye [Unknown]
  - Eye pain [Unknown]
  - Memory impairment [Unknown]
